FAERS Safety Report 6275790-6 (Version None)
Quarter: 2009Q3

REPORT INFORMATION
  Report Type: 
  Country: None (occurrence: None)
  Receive Date: 20090721
  Receipt Date: 20090710
  Transmission Date: 20100115
  Serious: Yes (Death)
  Sender: FDA-Public Use
  Company Number: IN-BAXTER-2009BH011514

PATIENT
  Age: 56 Year
  Sex: Female

DRUGS (2)
  1. DIANEAL [Suspect]
     Indication: PERITONEAL DIALYSIS
     Route: 033
     Dates: start: 20090606, end: 20090709
  2. DIANEAL [Suspect]
     Route: 033
     Dates: start: 20090606, end: 20090709

REACTIONS (3)
  - DIABETIC ULCER [None]
  - HYPERGLYCAEMIA [None]
  - MYOCARDIAL INFARCTION [None]
